FAERS Safety Report 4523392-1 (Version None)
Quarter: 2004Q4

REPORT INFORMATION
  Report Type: 
  Country: None (occurrence: None)
  Receive Date: 20041208
  Receipt Date: 20041124
  Transmission Date: 20050328
  Serious: Yes (Death)
  Sender: FDA-Public Use
  Company Number: 8000950

PATIENT
  Age: 87 Year
  Sex: Male
  Weight: 54.54 kg

DRUGS (5)
  1. KEPPRA [Suspect]
     Indication: CONVULSION
     Dosage: 250 MG 2/D PO
     Route: 048
     Dates: end: 20030101
  2. KEPPRA [Suspect]
     Indication: CONVULSION
     Dosage: 125 MG 2/D PO
     Route: 048
     Dates: start: 20030101, end: 20030101
  3. KEPPRA [Suspect]
     Indication: CONVULSION
     Dosage: 125 MG1/D PO
     Route: 048
     Dates: start: 20030201, end: 20030101
  4. KEPPRA [Suspect]
     Indication: CONVULSION
     Dosage: PO
     Route: 048
     Dates: start: 20030101, end: 20030101
  5. DILANTIN [Concomitant]

REACTIONS (8)
  - AGGRESSION [None]
  - DEHYDRATION [None]
  - DELUSION [None]
  - HALLUCINATION, VISUAL [None]
  - LOGORRHOEA [None]
  - PHYSICAL ASSAULT [None]
  - THERAPY NON-RESPONDER [None]
  - VOMITING [None]
